FAERS Safety Report 8114611-3 (Version None)
Quarter: 2012Q1

REPORT INFORMATION
  Report Type: 
  Country: None (occurrence: None)
  Receive Date: 20120206
  Receipt Date: 20120131
  Transmission Date: 20120608
  Serious: Yes (Other)
  Sender: FDA-Public Use
  Company Number: US-PFIZER INC-2012026547

PATIENT
  Sex: Male
  Weight: 68.934 kg

DRUGS (2)
  1. RELPAX [Suspect]
     Indication: MIGRAINE
     Dosage: 40 MG, AS NEEDED
     Dates: start: 20110101
  2. RELPAX [Suspect]
     Indication: HEADACHE

REACTIONS (1)
  - ULCER HAEMORRHAGE [None]
